FAERS Safety Report 11769704 (Version 3)
Quarter: 2015Q4

REPORT INFORMATION
  Report Type: Spontaneous
  Country: DE (occurrence: DE)
  Receive Date: 20151123
  Receipt Date: 20151124
  Transmission Date: 20160304
  Serious: Yes (Life-Threatening, Hospitalization, Disabling)
  Sender: FDA-Public Use
  Company Number: DE-TEVA-573449GER

PATIENT
  Age: 70 Year
  Sex: Female
  Weight: 63 kg

DRUGS (2)
  1. AMOXICILLIN. [Suspect]
     Active Substance: AMOXICILLIN
     Indication: BRONCHITIS
     Dosage: 3000 MILLIGRAM DAILY;
     Route: 048
     Dates: start: 201510
  2. METEX [Suspect]
     Active Substance: METFORMIN HYDROCHLORIDE
     Indication: PSORIATIC ARTHROPATHY
     Route: 058
     Dates: start: 20090601, end: 20150616

REACTIONS (9)
  - Amyotrophic lateral sclerosis [Not Recovered/Not Resolved]
  - Facial paresis [Unknown]
  - Slow speech [Unknown]
  - Tongue discolouration [Unknown]
  - Speech disorder [Unknown]
  - Dysphagia [Unknown]
  - Salivary hypersecretion [Unknown]
  - Dysarthria [Unknown]
  - Palatal disorder [Unknown]

NARRATIVE: CASE EVENT DATE: 201410
